FAERS Safety Report 9157448 (Version 1)
Quarter: 2013Q1

REPORT INFORMATION
  Report Type: Spontaneous
  Country: IT (occurrence: None)
  Receive Date: 20130212
  Receipt Date: 20130212
  Transmission Date: 20140127
  Serious: Yes (Other)
  Sender: FDA-Public Use
  Company Number: AUR-APL-2013-01158

PATIENT
  Age: 54 Year
  Sex: Female

DRUGS (8)
  1. SIMVASTATIN (SIMVASTATIN) [Suspect]
     Indication: PRODUCT USED FOR UNKNOWN INDICATION
     Route: 048
     Dates: start: 20111116, end: 20121115
  2. METFORMIN (METFORMIN) [Suspect]
     Route: 048
     Dates: start: 20111116, end: 20121115
  3. AULIN [Suspect]
     Route: 048
     Dates: start: 20121114, end: 20121114
  4. PERINDOPRIL ARGININE [Suspect]
     Route: 048
     Dates: start: 20111116, end: 20121115
  5. CARDICOR (BISOPROLOL FUMARATE) [Concomitant]
  6. ACTOS (PIOGLITAZONE) [Concomitant]
  7. MODURETIC (MODURETIC) [Concomitant]
  8. AGGRENOX (ASASANTIN) [Concomitant]

REACTIONS (2)
  - Alanine aminotransferase increased [None]
  - Aspartate aminotransferase increased [None]
